FAERS Safety Report 7385514-7 (Version None)
Quarter: 2011Q1

REPORT INFORMATION
  Report Type: 
  Country: None (occurrence: None)
  Receive Date: 20110331
  Receipt Date: 20110323
  Transmission Date: 20110831
  Serious: Yes (Death)
  Sender: FDA-Public Use
  Company Number: US-BIOGENIDEC-2010BI044518

PATIENT
  Age: 44 Year
  Sex: Female

DRUGS (8)
  1. OPANA [Concomitant]
  2. NUVIGIL [Concomitant]
     Indication: FATIGUE
  3. TIZANIDINE [Concomitant]
     Indication: SLEEP DISORDER
  4. ALLEGRA [Concomitant]
  5. HYDROMORPHONE HCL [Concomitant]
  6. TYSABRI [Suspect]
     Indication: MULTIPLE SCLEROSIS
     Route: 042
     Dates: start: 20080423
  7. LUNESTA [Concomitant]
  8. ADVAIR DISKUS 100/50 [Concomitant]
     Indication: ASTHMA

REACTIONS (1)
  - DEATH [None]
